FAERS Safety Report 5503190-2 (Version None)
Quarter: 2007Q4

REPORT INFORMATION
  Report Type: 
  Country: None (occurrence: None)
  Receive Date: 20071031
  Receipt Date: 20071025
  Transmission Date: 20080405
  Serious: Yes (Other)
  Sender: FDA-Public Use
  Company Number: US-AMGEN-US240928

PATIENT
  Sex: Female
  Weight: 73.1 kg

DRUGS (7)
  1. PROCRIT [Suspect]
     Indication: ANAEMIA OF MALIGNANT DISEASE
     Route: 058
     Dates: start: 20051004, end: 20060228
  2. PROCRIT [Suspect]
     Route: 058
     Dates: start: 20061026, end: 20061026
  3. ARANESP [Suspect]
     Indication: ANAEMIA OF MALIGNANT DISEASE
     Route: 058
     Dates: start: 20050509, end: 20050621
  4. ARANESP [Suspect]
     Route: 058
     Dates: start: 20060614, end: 20060705
  5. ARANESP [Suspect]
     Route: 058
     Dates: start: 20070617, end: 20070807
  6. ATIVAN [Concomitant]
  7. AMBIEN [Concomitant]

REACTIONS (3)
  - APLASIA PURE RED CELL [None]
  - MYELODYSPLASTIC SYNDROME [None]
  - SARCOIDOSIS [None]
